FAERS Safety Report 10912309 (Version 1)
Quarter: 2015Q1

REPORT INFORMATION
  Report Type: Spontaneous
  Country: US (occurrence: None)
  Receive Date: 20150310
  Receipt Date: 20150310
  Transmission Date: 20150721
  Serious: Yes (Hospitalization, Other)
  Sender: FDA-Public Use
  Company Number: US-ZYDUS-006873

PATIENT
  Age: 20 Year
  Sex: Female

DRUGS (1)
  1. LEVOFLOXACIN ( LEVOFLOXACIN) [Suspect]
     Active Substance: LEVOFLOXACIN

REACTIONS (5)
  - Stevens-Johnson syndrome [None]
  - Liver transplant [None]
  - Vanishing bile duct syndrome [None]
  - Hepatic failure [None]
  - International normalised ratio increased [None]
